FAERS Safety Report 11375958 (Version 2)
Quarter: 2015Q3

REPORT INFORMATION
  Report Type: Spontaneous
  Country: JP (occurrence: JP)
  Receive Date: 20150813
  Receipt Date: 20150831
  Transmission Date: 20151125
  Serious: Yes (Death, Hospitalization, Other)
  Sender: FDA-Public Use
  Company Number: JP-MYLANLABS-2015M1026108

PATIENT

DRUGS (6)
  1. TIGASONE [Concomitant]
     Active Substance: ACITRETIN
     Indication: PSORIASIS
     Dosage: 10 MG, UNK
     Route: 048
  2. OXAROL [Concomitant]
     Active Substance: MAXACALCITOL
     Indication: PSORIASIS
     Dosage: UNK
     Route: 062
  3. CARBOPLATIN INJECTION 150 MG ^NK^ [Suspect]
     Active Substance: CARBOPLATIN
     Indication: SEBACEOUS CARCINOMA
     Dosage: 4 COURCES
     Route: 041
     Dates: start: 20130808, end: 20140212
  4. CARBOPLATIN INJECTION 150 MG ^NK^ [Suspect]
     Active Substance: CARBOPLATIN
     Indication: METASTASES TO LUNG
  5. PACLITAXEL NK [Suspect]
     Active Substance: PACLITAXEL
     Indication: METASTASES TO LUNG
  6. PACLITAXEL NK [Suspect]
     Active Substance: PACLITAXEL
     Indication: SEBACEOUS CARCINOMA
     Dosage: 4 COURCES
     Route: 041
     Dates: start: 20130808, end: 20140219

REACTIONS (16)
  - Septic shock [Fatal]
  - Dysgeusia [Unknown]
  - Altered state of consciousness [None]
  - Ascites [None]
  - Pneumonia [Not Recovered/Not Resolved]
  - White blood cell count decreased [None]
  - Cytopenia [None]
  - Blood chloride increased [None]
  - Ventricular extrasystoles [None]
  - Acute respiratory failure [Fatal]
  - Pulmonary oedema [Fatal]
  - Pleural effusion [Not Recovered/Not Resolved]
  - Blood sodium increased [None]
  - Febrile neutropenia [Recovered/Resolved]
  - Renal impairment [Unknown]
  - Tubulointerstitial nephritis [None]

NARRATIVE: CASE EVENT DATE: 20140223
